FAERS Safety Report 15957451 (Version 2)
Quarter: 2019Q2

REPORT INFORMATION
  Report Type: Spontaneous
  Country: BR (occurrence: BR)
  Receive Date: 20190213
  Receipt Date: 20190412
  Transmission Date: 20190711
  Serious: Yes (Other)
  Sender: FDA-Public Use
  Company Number: BR-ASTRAZENECA-2019SE23634

PATIENT
  Sex: Male

DRUGS (4)
  1. AMIODARONE [Concomitant]
     Active Substance: AMIODARONE
  2. DIOVAN [Concomitant]
     Active Substance: VALSARTAN
  3. CRESTOR [Suspect]
     Active Substance: ROSUVASTATIN CALCIUM
     Indication: BLOOD TRIGLYCERIDES
     Dosage: 10 MG
     Route: 048
  4. CRESTOR [Suspect]
     Active Substance: ROSUVASTATIN CALCIUM
     Indication: BLOOD CHOLESTEROL
     Dosage: 10 MG
     Route: 048

REACTIONS (13)
  - Abdominal distension [Recovered/Resolved]
  - Vomiting [Recovered/Resolved]
  - Emotional disorder [Recovered/Resolved]
  - Nasal inflammation [Recovered/Resolved]
  - Hypertension [Not Recovered/Not Resolved]
  - Throat irritation [Recovered/Resolved]
  - Nausea [Recovered/Resolved]
  - Somnolence [Recovered/Resolved]
  - Pharyngeal oedema [Recovered/Resolved]
  - Laryngeal oedema [Recovered/Resolved]
  - Dyspnoea [Recovered/Resolved]
  - Salivary hypersecretion [Recovered/Resolved]
  - Insomnia [Recovered/Resolved]

NARRATIVE: CASE EVENT DATE: 2019
